FAERS Safety Report 7989045-2 (Version None)
Quarter: 2011Q4

REPORT INFORMATION
  Report Type: 
  Country: None (occurrence: None)
  Receive Date: 20111215
  Receipt Date: 20111215
  Transmission Date: 20120403
  Serious: No
  Sender: FDA-Public Use
  Company Number: None

PATIENT
  Age: 71 Year
  Sex: Male
  Weight: 73.6 kg

DRUGS (1)
  1. ENTACAPONE [Suspect]
     Dosage: 200 MG QID PO
     Route: 048
     Dates: start: 20110820, end: 20111110

REACTIONS (1)
  - HALLUCINATION [None]
